FAERS Safety Report 9262509 (Version 1)
Quarter: 2013Q2

REPORT INFORMATION
  Report Type: Spontaneous
  Country: FR (occurrence: FR)
  Receive Date: 20130430
  Receipt Date: 20130430
  Transmission Date: 20140414
  Serious: Yes (Hospitalization)
  Sender: FDA-Public Use
  Company Number: FR-ROCHE-1217461

PATIENT
  Age: 57 Year
  Sex: Male

DRUGS (13)
  1. MABTHERA [Suspect]
     Indication: MANTLE CELL LYMPHOMA
     Route: 042
     Dates: start: 201004
  2. MABTHERA [Suspect]
     Route: 065
     Dates: start: 201005
  3. MABTHERA [Suspect]
     Route: 065
     Dates: start: 201010
  4. DEXAMETHASONE [Suspect]
     Indication: MANTLE CELL LYMPHOMA
     Route: 042
     Dates: start: 201004
  5. DEXAMETHASONE [Suspect]
     Route: 065
     Dates: start: 201005
  6. DEXAMETHASONE [Suspect]
     Route: 065
     Dates: start: 201010
  7. ARACYTINE [Suspect]
     Indication: MANTLE CELL LYMPHOMA
     Route: 042
     Dates: start: 201004
  8. ARACYTINE [Suspect]
     Route: 065
     Dates: start: 201005
  9. ARACYTINE [Suspect]
     Route: 065
     Dates: start: 201010
  10. CISPLATIN [Suspect]
     Indication: MANTLE CELL LYMPHOMA
     Route: 042
     Dates: start: 201004
  11. CISPLATIN [Suspect]
     Route: 065
     Dates: start: 201005
  12. CISPLATIN [Suspect]
     Route: 065
     Dates: start: 201010
  13. PRIMPERAN (FRANCE) [Concomitant]

REACTIONS (2)
  - Febrile bone marrow aplasia [Recovered/Resolved]
  - Aspergillus infection [Recovered/Resolved]
